FAERS Safety Report 4916446-9 (Version None)
Quarter: 2006Q1

REPORT INFORMATION
  Report Type: 
  Country: None (occurrence: None)
  Receive Date: 20060214
  Receipt Date: 20060203
  Transmission Date: 20060701
  Serious: Yes (Other)
  Sender: FDA-Public Use
  Company Number: 200610109BYL

PATIENT
  Age: 87 Year
  Sex: Female
  Weight: 33.8 kg

DRUGS (4)
  1. AVELOX [Suspect]
     Indication: CYSTITIS
     Dosage: 400 MG, QD, ORAL
     Route: 048
     Dates: start: 20060110, end: 20060113
  2. ALESION [Concomitant]
  3. VOLTAREN [Concomitant]
  4. LENDORMIN [Concomitant]

REACTIONS (9)
  - ARRHYTHMIA [None]
  - BLOOD PRESSURE SYSTOLIC INCREASED [None]
  - CARDIAC DISORDER [None]
  - ELECTROCARDIOGRAM QT PROLONGED [None]
  - FACE OEDEMA [None]
  - OEDEMA [None]
  - OEDEMA PERIPHERAL [None]
  - OVERDOSE [None]
  - PLEURAL EFFUSION [None]
